FAERS Safety Report 16628854 (Version 1)
Quarter: 2019Q3

REPORT INFORMATION
  Report Type: Spontaneous
  Country: US (occurrence: US)
  Receive Date: 20190725
  Receipt Date: 20190725
  Transmission Date: 20191004
  Serious: Yes (Death, Hospitalization, Other)
  Sender: FDA-Public Use
  Company Number: US-INCYTE CORPORATION-2019IN006393

PATIENT

DRUGS (3)
  1. JAKAFI [Suspect]
     Active Substance: RUXOLITINIB
     Dosage: 10 MILLIGRAM, BID
     Route: 065
     Dates: start: 201811
  2. JAKAFI [Suspect]
     Active Substance: RUXOLITINIB
     Indication: MYELOFIBROSIS
     Dosage: 10 MILLIGRAM, BID
     Route: 048
     Dates: start: 201712
  3. JAKAFI [Suspect]
     Active Substance: RUXOLITINIB
     Dosage: 5 MILLIGRAM, BID
     Route: 065
     Dates: start: 201801

REACTIONS (17)
  - Defaecation disorder [Unknown]
  - Haemoglobin decreased [Unknown]
  - Fall [Unknown]
  - Epistaxis [Unknown]
  - Contusion [Unknown]
  - Umbilical hernia [Unknown]
  - Blood pressure decreased [Unknown]
  - Death [Fatal]
  - Blood product transfusion dependent [Unknown]
  - Fatigue [Unknown]
  - Myelofibrosis [Unknown]
  - Platelet count decreased [Unknown]
  - Early satiety [Unknown]
  - Splenomegaly [Unknown]
  - Hot flush [Unknown]
  - Therapeutic product ineffective [Unknown]
  - Asthenia [Unknown]

NARRATIVE: CASE EVENT DATE: 20190621
